FAERS Safety Report 25989910 (Version 1)
Quarter: 2025Q4

REPORT INFORMATION
  Report Type: Spontaneous
  Country: US (occurrence: None)
  Receive Date: 20251031
  Receipt Date: 20251031
  Transmission Date: 20260118
  Serious: Yes (Hospitalization, Disabling)
  Sender: FDA-CTU
  Company Number: None

PATIENT
  Age: 53 Year
  Sex: Male

DRUGS (6)
  1. COPAXONE [Suspect]
     Active Substance: GLATIRAMER ACETATE
     Dosage: OTHER QUANTITY : 0.92(FOR ZEPOSIA);UNKNOWN (FOR COPAXONE);UNKNOWN (FOR GILENYA); UNKNWON ;?
  2. GABAPENTIN [Suspect]
     Active Substance: GABAPENTIN
  3. PREGABALIN [Suspect]
     Active Substance: PREGABALIN
  4. REBIF [Suspect]
     Active Substance: INTERFERON BETA-1A
  5. GILENYA [Suspect]
     Active Substance: FINGOLIMOD HYDROCHLORIDE
  6. ZEPOSIA [Suspect]
     Active Substance: OZANIMOD HYDROCHLORIDE

REACTIONS (10)
  - Balance disorder [None]
  - Fall [None]
  - Gait disturbance [None]
  - Multiple sclerosis relapse [None]
  - Multiple sclerosis [None]
  - Pain [None]
  - Blindness transient [None]
  - Arthralgia [None]
  - Muscle spasms [None]
  - Product substitution issue [None]
